FAERS Safety Report 18113326 (Version 1)
Quarter: 2020Q3

REPORT INFORMATION
  Report Type: Spontaneous
  Country: US (occurrence: US)
  Receive Date: 20200805
  Receipt Date: 20200805
  Transmission Date: 20201103
  Serious: No
  Sender: FDA-Public Use
  Company Number: US-PFIZER INC-2020293324

PATIENT
  Age: 90 Year
  Sex: Male
  Weight: 69.85 kg

DRUGS (3)
  1. CELEBREX [Suspect]
     Active Substance: CELECOXIB
     Indication: BACK PAIN
     Dosage: 200 MG, 1X/DAY(200MG, CAPSULE BY MOUTH, ONCE DAILY)
     Route: 048
     Dates: start: 201911, end: 202006
  2. CELEBREX [Suspect]
     Active Substance: CELECOXIB
     Indication: SPINAL OPERATION
  3. DETROL LA [Concomitant]
     Active Substance: TOLTERODINE TARTRATE
     Dosage: 4 MG, 1X/DAY
     Route: 048

REACTIONS (1)
  - Dyspepsia [Recovered/Resolved]

NARRATIVE: CASE EVENT DATE: 202006
